FAERS Safety Report 20483270 (Version 2)
Quarter: 2022Q2

REPORT INFORMATION
  Report Type: Report from Study
  Country: DE (occurrence: DE)
  Receive Date: 20220217
  Receipt Date: 20220602
  Transmission Date: 20220721
  Serious: Yes (Hospitalization)
  Sender: FDA-Public Use
  Company Number: DE-ABBVIE-22K-062-4281546-00

PATIENT
  Age: 32 Year
  Sex: Female

DRUGS (9)
  1. RINVOQ [Suspect]
     Active Substance: UPADACITINIB
     Indication: Psoriatic arthropathy
     Route: 048
     Dates: start: 20200916, end: 20201015
  2. RINVOQ [Suspect]
     Active Substance: UPADACITINIB
     Route: 048
     Dates: start: 20201020, end: 20201209
  3. RINVOQ [Suspect]
     Active Substance: UPADACITINIB
     Route: 048
     Dates: start: 20201222, end: 20210217
  4. TALTZ [Suspect]
     Active Substance: IXEKIZUMAB
     Indication: Product used for unknown indication
     Route: 065
     Dates: start: 20200520, end: 20200813
  5. TALTZ [Suspect]
     Active Substance: IXEKIZUMAB
     Route: 065
     Dates: start: 20200909, end: 20210312
  6. METHOTREXATE [Concomitant]
     Active Substance: METHOTREXATE
     Indication: Product used for unknown indication
     Route: 048
     Dates: start: 20200911
  7. METHOTREXATE SODIUM [Concomitant]
     Active Substance: METHOTREXATE SODIUM
     Indication: Product used for unknown indication
     Dates: start: 20200522, end: 20200820
  8. METHOTREXATE SODIUM [Concomitant]
     Active Substance: METHOTREXATE SODIUM
     Route: 048
     Dates: start: 20200911, end: 20210707
  9. OLUMIANT [Concomitant]
     Active Substance: BARICITINIB
     Indication: Product used for unknown indication
     Dates: start: 20200526, end: 20200829

REACTIONS (15)
  - Vascular device infection [Recovered/Resolved]
  - Diabetic gastroparesis [Not Recovered/Not Resolved]
  - Acute kidney injury [Unknown]
  - Dehydration [Unknown]
  - Staphylococcal infection [Recovered/Resolved]
  - Malnutrition [Unknown]
  - Hypothyroidism [Unknown]
  - Procedural vomiting [Unknown]
  - Pneumoperitoneum [Unknown]
  - Jejunostomy [Unknown]
  - Upper respiratory tract infection [Unknown]
  - Pneumonia aspiration [Recovered/Resolved]
  - Psoriatic arthropathy [Recovered/Resolved]
  - Psoriatic arthropathy [Unknown]
  - Psoriatic arthropathy [Unknown]

NARRATIVE: CASE EVENT DATE: 20210101
